FAERS Safety Report 16865648 (Version 1)
Quarter: 2019Q3

REPORT INFORMATION
  Report Type: Spontaneous
  Country: US (occurrence: US)
  Receive Date: 20190805
  Receipt Date: 20190805
  Transmission Date: 20191005
  Serious: Yes (Hospitalization)
  Sender: FDA-Public Use
  Company Number: None

PATIENT

DRUGS (2)
  1. 20 ML NORMAL SALINE [Suspect]
     Active Substance: SODIUM CHLORIDE
  2. IOPAMIDOL 370 [Suspect]
     Active Substance: IOPAMIDOL

REACTIONS (1)
  - Therapeutic product effect incomplete [None]
